FAERS Safety Report 4496114-0 (Version None)
Quarter: 2004Q4

REPORT INFORMATION
  Report Type: 
  Country: None (occurrence: None)
  Receive Date: 20041108
  Receipt Date: 20041029
  Transmission Date: 20050328
  Serious: Yes (Life-Threatening, Hospitalization, Disabling)
  Sender: FDA-Public Use
  Company Number: US-MERCK-0411USA00037

PATIENT
  Age: 62 Year
  Sex: Female

DRUGS (4)
  1. VIOXX [Suspect]
     Indication: ARTHRITIS
     Route: 048
  2. PREMARIN [Concomitant]
     Route: 065
  3. PRILOSEC [Concomitant]
     Route: 065
  4. FLORITAL [Concomitant]
     Route: 065

REACTIONS (1)
  - THROMBOTIC STROKE [None]
